FAERS Safety Report 5314486-1 (Version None)
Quarter: 2007Q2

REPORT INFORMATION
  Report Type: 
  Country: None (occurrence: None)
  Receive Date: 20070502
  Receipt Date: 20070424
  Transmission Date: 20071010
  Serious: Yes (Disabling)
  Sender: FDA-Public Use
  Company Number: DK-AVENTIS-200713241GDDC

PATIENT
  Age: 56 Year
  Sex: Female
  Weight: 60 kg

DRUGS (5)
  1. ARAVA [Suspect]
     Indication: RHEUMATOID ARTHRITIS
     Dates: start: 20041201, end: 20070322
  2. REMICADE [Suspect]
     Indication: RHEUMATOID ARTHRITIS
     Dates: start: 20061101, end: 20070322
  3. SALAZOPYRIN [Concomitant]
     Dates: start: 19920101, end: 20060101
  4. PLAQUENIL                          /00072601/ [Concomitant]
     Dates: start: 20040830
  5. METHOTREXATE [Concomitant]
     Dates: start: 20030901, end: 20041101

REACTIONS (3)
  - COUGH [None]
  - FIBROSIS [None]
  - PNEUMONITIS [None]
